FAERS Safety Report 25849837 (Version 1)
Quarter: 2025Q3

REPORT INFORMATION
  Report Type: Spontaneous
  Country: EU (occurrence: EU)
  Receive Date: 20250926
  Receipt Date: 20250926
  Transmission Date: 20251021
  Serious: Yes (Life-Threatening, Other)
  Sender: AUROBINDO
  Company Number: EU-AFSSAPS-CF2025000453

PATIENT
  Age: 50 Year
  Sex: Female
  Weight: 70 kg

DRUGS (5)
  1. PRAZEPAM [Suspect]
     Active Substance: PRAZEPAM
     Indication: Product used for unknown indication
     Route: 048
     Dates: start: 20250902, end: 20250902
  2. SERTRALINE [Suspect]
     Active Substance: SERTRALINE HYDROCHLORIDE
     Indication: Depression
     Route: 048
     Dates: start: 20240821, end: 20250902
  3. ACETAMINOPHEN [Suspect]
     Active Substance: ACETAMINOPHEN
     Indication: Product used for unknown indication
     Route: 048
     Dates: start: 20250902, end: 20250902
  4. SKENAN [Suspect]
     Active Substance: MORPHINE SULFATE
     Indication: Poisoning deliberate
     Route: 048
     Dates: start: 20250902, end: 20250902
  5. QUVIVIQ [Suspect]
     Active Substance: DARIDOREXANT
     Indication: Poisoning deliberate
     Route: 048
     Dates: start: 20250902, end: 20250902

REACTIONS (5)
  - Nervous system disorder [Recovered/Resolved]
  - Respiratory failure [Recovered/Resolved]
  - Intentional product misuse [Recovered/Resolved]
  - Poisoning deliberate [Recovered/Resolved]
  - Liver injury [Recovering/Resolving]

NARRATIVE: CASE EVENT DATE: 20250902
